FAERS Safety Report 11589828 (Version 1)
Quarter: 2015Q4

REPORT INFORMATION
  Report Type: Spontaneous
  Country: TH (occurrence: KH)
  Receive Date: 20151002
  Receipt Date: 20151002
  Transmission Date: 20160304
  Serious: Yes (Other)
  Sender: FDA-Public Use
  Company Number: TH-GLAXOSMITHKLINE-KH2015GSK140307

PATIENT

DRUGS (4)
  1. ATOVAQUONE. [Suspect]
     Active Substance: ATOVAQUONE
     Indication: PLASMODIUM FALCIPARUM INFECTION
  2. ARTESUNATE [Suspect]
     Active Substance: ARTESUNATE
     Indication: PLASMODIUM FALCIPARUM INFECTION
  3. PRIMAQUINE [Suspect]
     Active Substance: PRIMAQUINE PHOSPHATE
     Indication: PLASMODIUM FALCIPARUM INFECTION
  4. PROGUANIL [Suspect]
     Active Substance: PROGUANIL
     Indication: PLASMODIUM FALCIPARUM INFECTION

REACTIONS (1)
  - Drug-induced liver injury [Unknown]
